FAERS Safety Report 7937803-2 (Version None)
Quarter: 2011Q4

REPORT INFORMATION
  Report Type: 
  Country: None (occurrence: None)
  Receive Date: 20111123
  Receipt Date: 20111116
  Transmission Date: 20120403
  Serious: Yes (Hospitalization)
  Sender: FDA-Public Use
  Company Number: ES-BAYER-2011-109239

PATIENT
  Age: 84 Year
  Sex: Male
  Weight: 69 kg

DRUGS (7)
  1. PANTOPRAZOLE [Concomitant]
     Route: 048
     Dates: start: 20100101
  2. IRON [Concomitant]
     Route: 042
  3. SINTROM [Interacting]
     Indication: CARDIAC VALVE PROSTHESIS USER
     Route: 048
     Dates: start: 19910101, end: 20110901
  4. CITALOPRAM HYDROBROMIDE [Concomitant]
     Route: 048
     Dates: start: 20100101
  5. COZAAR [Concomitant]
     Indication: CORONARY ARTERY DISEASE
     Route: 048
     Dates: start: 20100101
  6. ASPIRIN [Suspect]
     Route: 048
     Dates: start: 20100101
  7. CARVEDILOL [Concomitant]
     Indication: CORONARY ARTERY DISEASE
     Route: 048
     Dates: start: 20100101

REACTIONS (4)
  - HAEMOGLOBIN DECREASED [None]
  - HAEMANGIOMA [None]
  - INTERNATIONAL NORMALISED RATIO INCREASED [None]
  - UPPER GASTROINTESTINAL HAEMORRHAGE [None]
